FAERS Safety Report 7725773-1 (Version None)
Quarter: 2011Q3

REPORT INFORMATION
  Report Type: 
  Country: None (occurrence: None)
  Receive Date: 20110902
  Receipt Date: 20110824
  Transmission Date: 20111222
  Serious: Yes (Other)
  Sender: FDA-Public Use
  Company Number: US-BRISTOL-MYERS SQUIBB COMPANY-15908411

PATIENT
  Age: 35 Year
  Sex: Female

DRUGS (1)
  1. SPRYCEL [Suspect]
     Indication: CHRONIC MYELOID LEUKAEMIA
     Route: 048
     Dates: start: 20080201

REACTIONS (5)
  - RASH PAPULAR [None]
  - FOCAL SEGMENTAL GLOMERULOSCLEROSIS [None]
  - DIARRHOEA [None]
  - DRY SKIN [None]
  - GENERALISED OEDEMA [None]
